FAERS Safety Report 8853021 (Version 2)
Quarter: 2014Q2

REPORT INFORMATION
  Report Type: Spontaneous
  Country: PT (occurrence: PT)
  Receive Date: 20121022
  Receipt Date: 20140408
  Transmission Date: 20141212
  Serious: Yes (Other)
  Sender: FDA-Public Use
  Company Number: PT-WATSON-2012-18132

PATIENT
  Age: 53 Year
  Sex: Female

DRUGS (4)
  1. ZOLPIDEM TARTRATE (UNKNOWN) [Suspect]
     Indication: INSOMNIA
     Dosage: 10 MG, DAILY
     Route: 065
  2. ZOLPIDEM TARTRATE (UNKNOWN) [Suspect]
     Dosage: 5 MG, DAILY
     Route: 065
  3. SIMVASTATIN [Concomitant]
     Indication: PRODUCT USED FOR UNKNOWN INDICATION
     Dosage: UNK
     Route: 065
  4. CAPTOPRIL [Concomitant]
     Indication: PRODUCT USED FOR UNKNOWN INDICATION
     Dosage: UNK
     Route: 065

REACTIONS (6)
  - Sleep-related eating disorder [Recovered/Resolved]
  - Amnesia [Recovered/Resolved]
  - Weight increased [Recovered/Resolved]
  - Fatigue [Recovered/Resolved]
  - Nausea [Recovered/Resolved]
  - Decreased appetite [Recovered/Resolved]
